FAERS Safety Report 4707869-1 (Version None)
Quarter: 2005Q3

REPORT INFORMATION
  Report Type: 
  Country: None (occurrence: None)
  Receive Date: 20050705
  Receipt Date: 20050705
  Transmission Date: 20060218
  Serious: Yes (Life-Threatening)
  Sender: FDA-Public Use
  Company Number: None

PATIENT
  Age: 42 Year
  Sex: Female
  Weight: 53.3 kg

DRUGS (1)
  1. MOXIFLOXAIN    400MG    BAYER [Suspect]
     Indication: PNEUMONIA
     Dosage: 400MG   DAILY   INTRAVENOU
     Route: 042
     Dates: start: 20050625, end: 20050629

REACTIONS (3)
  - TORSADE DE POINTES [None]
  - VENTRICULAR EXTRASYSTOLES [None]
  - VENTRICULAR TACHYCARDIA [None]
